FAERS Safety Report 8153247-5 (Version None)
Quarter: 2012Q1

REPORT INFORMATION
  Report Type: 
  Country: None (occurrence: None)
  Receive Date: 20120103
  Receipt Date: 20111027
  Transmission Date: 20120608
  Serious: No
  Sender: FDA-Public Use
  Company Number: AE-2011-002775

PATIENT
  Age: 55 Year
  Sex: Female
  Weight: 108.8633 kg

DRUGS (10)
  1. INCIVEK [Suspect]
     Dosage: 2250 MG (750 MG,3 IN 1 D),ORAL
     Route: 048
     Dates: start: 20111024
  2. SPIRONOLACTONE [Concomitant]
  3. LEVOTHYROXINE SODIUM [Concomitant]
  4. PEGINTERFERON (PEGINTERFERON ALFA-2A) [Concomitant]
  5. RIBAVIRIN [Concomitant]
  6. AMLODIPINE [Concomitant]
  7. VCODIN (VICODIN) [Concomitant]
  8. NEXIUM [Concomitant]
  9. FUROSEMIDE [Concomitant]
  10. CARISOPRODOL (CARISOPRODOL) [Concomitant]

REACTIONS (1)
  - PRURITUS [None]
